FAERS Safety Report 5890173-6 (Version None)
Quarter: 2008Q3

REPORT INFORMATION
  Report Type: 
  Country: None (occurrence: None)
  Receive Date: 20080919
  Receipt Date: 20080909
  Transmission Date: 20090109
  Serious: Yes (Hospitalization)
  Sender: FDA-Public Use
  Company Number: JP-PFIZER INC-2008073649

PATIENT
  Sex: Male
  Weight: 56 kg

DRUGS (7)
  1. SU-011,248 [Suspect]
     Indication: NEOPLASM
     Route: 048
     Dates: start: 20080820
  2. PEMETREXED [Suspect]
     Indication: NEOPLASM
     Route: 042
     Dates: start: 20080820
  3. VOGLIBOSE [Concomitant]
     Route: 048
     Dates: start: 20080721
  4. GLIMEPIRIDE [Concomitant]
     Route: 048
     Dates: start: 20080721
  5. AMLODIPINE BESYLATE [Concomitant]
     Route: 048
     Dates: start: 20080721
  6. PANVITAN [Concomitant]
     Route: 048
     Dates: start: 20080813
  7. LATANOPROST [Concomitant]
     Route: 047
     Dates: start: 20020104

REACTIONS (3)
  - PLEURAL EFFUSION [None]
  - PNEUMOTHORAX [None]
  - PYREXIA [None]
